FAERS Safety Report 19876387 (Version 1)
Quarter: 2021Q3

REPORT INFORMATION
  Report Type: Spontaneous
  Country: US (occurrence: US)
  Receive Date: 20210924
  Receipt Date: 20210924
  Transmission Date: 20211014
  Serious: Yes (Other)
  Sender: FDA-Public Use
  Company Number: US-APOTEX-2021AP042923

PATIENT
  Age: 22 Year
  Sex: Female

DRUGS (4)
  1. RISPERIDONE. [Suspect]
     Active Substance: RISPERIDONE
     Indication: NIGHTMARE
  2. RISPERIDONE. [Suspect]
     Active Substance: RISPERIDONE
     Indication: THINKING ABNORMAL
     Dosage: 0.5 MILLIGRAM, Q.H.S.
     Route: 065
  3. RISPERIDONE. [Suspect]
     Active Substance: RISPERIDONE
     Indication: DISSOCIATION
  4. RISPERIDONE. [Suspect]
     Active Substance: RISPERIDONE
     Indication: POST-TRAUMATIC STRESS DISORDER
     Dosage: 0.5 MILLIGRAM, Q.H.S.
     Route: 065

REACTIONS (1)
  - Hyperprolactinaemia [Recovered/Resolved]
